FAERS Safety Report 9246603 (Version 1)
Quarter: 2013Q2

REPORT INFORMATION
  Report Type: Spontaneous
  Country: US (occurrence: US)
  Receive Date: 20130422
  Receipt Date: 20130422
  Transmission Date: 20140414
  Serious: No
  Sender: FDA-Public Use
  Company Number: US-ABBOTT-12P-163-0936258-00

PATIENT
  Sex: 0

DRUGS (3)
  1. LUPRON DEPOT-PED 11.25 MG [Suspect]
     Indication: PRECOCIOUS PUBERTY
     Dates: start: 201110
  2. LUPRON DEPOT-PED 11.25 MG [Suspect]
  3. LUPRON DEPOT-PED 7.5 MG [Suspect]
     Indication: PRECOCIOUS PUBERTY

REACTIONS (3)
  - Drug ineffective [Unknown]
  - Medication error [Unknown]
  - Incorrect dose administered [Unknown]
